FAERS Safety Report 9561905 (Version 1)
Quarter: 2013Q3

REPORT INFORMATION
  Report Type: Spontaneous
  Country: GB (occurrence: None)
  Receive Date: 20130830
  Receipt Date: 20130830
  Transmission Date: 20140515
  Serious: Yes (Other)
  Sender: FDA-Public Use
  Company Number: AMAG201300076

PATIENT
  Age: 35 Year
  Sex: Female

DRUGS (2)
  1. RIENSO [Suspect]
     Dosage: UNK UNK, SINGLE, INTRAVENOUS
     Route: 042
     Dates: start: 20130417, end: 20130417
  2. NACI (NACI) [Concomitant]
     Dosage: UNK UNK, SINGLE , INTRAVENOUS

REACTIONS (4)
  - Anaphylactic reaction [None]
  - Cough [None]
  - Erythema [None]
  - Dyspnoea [None]
